FAERS Safety Report 11781622 (Version 1)
Quarter: 2015Q4

REPORT INFORMATION
  Report Type: Spontaneous
  Country: GB (occurrence: GB)
  Receive Date: 20151126
  Receipt Date: 20151126
  Transmission Date: 20160305
  Serious: Yes (Other)
  Sender: FDA-Public Use
  Company Number: GB-ASTRAZENECA-2015SF12928

PATIENT
  Age: 68 Year

DRUGS (2)
  1. EXENATIDE [Suspect]
     Active Substance: EXENATIDE
     Indication: DIABETES MELLITUS
     Dosage: PRE-FILLED PEN
     Route: 065
     Dates: start: 20150925, end: 20151103
  2. EXENATIDE [Suspect]
     Active Substance: EXENATIDE
     Indication: DIABETES MELLITUS
     Dosage: VIAL AND SOLVENT
     Route: 065

REACTIONS (2)
  - Product substitution issue [Unknown]
  - Blood glucose increased [Recovering/Resolving]
